FAERS Safety Report 17815669 (Version 1)
Quarter: 2020Q2

REPORT INFORMATION
  Report Type: Spontaneous
  Country: US (occurrence: US)
  Receive Date: 20200522
  Receipt Date: 20200522
  Transmission Date: 20200714
  Serious: No
  Sender: FDA-Public Use
  Company Number: US-PFIZER INC-2017040005

PATIENT
  Age: 66 Year
  Sex: Female
  Weight: 82 kg

DRUGS (5)
  1. SOMAVERT [Suspect]
     Active Substance: PEGVISOMANT
     Dosage: 20 MG, 1X/DAY
     Route: 058
  2. MULTIVITAMIN [ASCORBIC ACID;BIOTIN;CALCIUM PANTOTHENATE;CYANOCOBALAMIN [Concomitant]
     Active Substance: VITAMINS
     Indication: SUPPLEMENTATION THERAPY
     Dosage: 1 DF, 1X/DAY
  3. SOMAVERT [Suspect]
     Active Substance: PEGVISOMANT
     Dosage: 10 MG, 1X/DAY
  4. SOMAVERT [Suspect]
     Active Substance: PEGVISOMANT
     Dosage: 15 MG, 1X/DAY (INJECTION UNDER THE SKIN EACH NIGHT)
     Route: 058
  5. CABERGOLINE. [Concomitant]
     Active Substance: CABERGOLINE
     Indication: HYPOTHALAMO-PITUITARY DISORDER
     Dosage: 0.5 MG, 2X/WEEK
     Route: 048

REACTIONS (1)
  - Insulin-like growth factor abnormal [Unknown]
